FAERS Safety Report 20751777 (Version 2)
Quarter: 2022Q2

REPORT INFORMATION
  Report Type: Report from Study
  Country: US (occurrence: US)
  Receive Date: 20220426
  Receipt Date: 20220428
  Transmission Date: 20220721
  Serious: Yes (Other)
  Sender: FDA-Public Use
  Company Number: US-NOVARTISPH-NVSC2022US095079

PATIENT
  Sex: Female

DRUGS (1)
  1. XIIDRA [Suspect]
     Active Substance: LIFITEGRAST
     Indication: Keratitis
     Dosage: 1 DRP, BID
     Route: 047

REACTIONS (3)
  - Cataract [Unknown]
  - Wrong technique in product usage process [Unknown]
  - Eye irritation [Unknown]
